FAERS Safety Report 19966615 (Version 2)
Quarter: 2021Q4

REPORT INFORMATION
  Report Type: Spontaneous
  Country: US (occurrence: None)
  Receive Date: 20211019
  Receipt Date: 20211103
  Transmission Date: 20220303
  Serious: Yes (Hospitalization)
  Sender: FDA-Public Use
  Company Number: US-FARMAPROD-202110-1812

PATIENT
  Age: 43 Year
  Sex: Male

DRUGS (4)
  1. OXERVATE [Suspect]
     Active Substance: CENEGERMIN-BKBJ
     Indication: Neurotrophic keratopathy
     Route: 047
     Dates: start: 20210909
  2. BEPREVE [Concomitant]
     Active Substance: BEPOTASTINE BESILATE
  3. REFRESH CLASSIC [Concomitant]
     Active Substance: POLYVINYL ALCOHOL\POVIDONE
  4. RESTASIS [Concomitant]
     Active Substance: CYCLOSPORINE
     Dosage: 0.05% DROPERETTE

REACTIONS (2)
  - Hospitalisation [Unknown]
  - Wrong technique in product usage process [Unknown]

NARRATIVE: CASE EVENT DATE: 20210901
